FAERS Safety Report 7653255-4 (Version None)
Quarter: 2011Q3

REPORT INFORMATION
  Report Type: 
  Country: None (occurrence: None)
  Receive Date: 20110803
  Receipt Date: 20080802
  Transmission Date: 20111222
  Serious: Yes (Other)
  Sender: FDA-Public Use
  Company Number: US-BAYER-200816563NA

PATIENT
  Age: 30 Year
  Sex: Female
  Weight: 51 kg

DRUGS (19)
  1. MAGNEVIST [Suspect]
     Indication: NUCLEAR MAGNETIC RESONANCE IMAGING
     Dosage: 14 ML, ONCE
     Route: 042
     Dates: start: 20030905, end: 20030905
  2. METOPROLOL TARTRATE [Concomitant]
  3. EPOGEN [Concomitant]
  4. CYCLOSPORINE [Concomitant]
  5. MAGNEVIST [Suspect]
     Dosage: 10 ML, ONCE
     Route: 042
     Dates: start: 20041101, end: 20041101
  6. MAGNEVIST [Suspect]
     Indication: VENOGRAM
  7. CELLCEPT [Concomitant]
  8. SEVELAMER [Concomitant]
  9. MAGNEVIST [Suspect]
     Indication: ANGIOGRAM
     Dosage: 10 ML, ONCE
     Route: 042
     Dates: start: 20050422, end: 20050422
  10. PROGRAF [Concomitant]
  11. PROCRIT [Concomitant]
  12. FERROUS SULFATE TAB [Concomitant]
  13. HEPARIN [Concomitant]
  14. LEVOTHYROXINE SODIUM [Concomitant]
  15. ARANESP [Concomitant]
  16. CLONIDINE [Concomitant]
  17. CYTOXAN [Concomitant]
  18. MAGNEVIST [Suspect]
     Dosage: 10 ML, ONCE
     Route: 042
     Dates: start: 20040401, end: 20040401
  19. PREDNISONE [Concomitant]

REACTIONS (14)
  - FIBROSIS [None]
  - JOINT CONTRACTURE [None]
  - SKIN DISCOLOURATION [None]
  - INJURY [None]
  - SCAR [None]
  - SKIN HYPERTROPHY [None]
  - TENDERNESS [None]
  - PAIN [None]
  - SKIN INDURATION [None]
  - ANXIETY [None]
  - NEPHROGENIC SYSTEMIC FIBROSIS [None]
  - ARTHRALGIA [None]
  - EMOTIONAL DISTRESS [None]
  - OEDEMA PERIPHERAL [None]
